FAERS Safety Report 12999702 (Version 3)
Quarter: 2016Q4

REPORT INFORMATION
  Report Type: Report from Study
  Country: GB (occurrence: GB)
  Receive Date: 20161205
  Receipt Date: 20161221
  Transmission Date: 20170207
  Serious: Yes (Hospitalization)
  Sender: FDA-Public Use
  Company Number: GB-ROCHE-1857736

PATIENT
  Age: 61 Year
  Sex: Male
  Weight: 74.9 kg

DRUGS (8)
  1. THYROXIN [Concomitant]
     Active Substance: LEVOTHYROXINE
     Indication: HYPOTHYROIDISM
     Route: 065
     Dates: start: 20160401
  2. DOMPERIDONE [Concomitant]
     Active Substance: DOMPERIDONE
     Route: 065
     Dates: start: 20160307
  3. BEVACIZUMAB [Suspect]
     Active Substance: BEVACIZUMAB
     Indication: RENAL CELL CARCINOMA
     Dosage: THE MOST RECENT DOSE OF BEVACIZUMAB PRIOR TO THE ONSET OF THE EVENT WAS 1200 MG ON 17/OCT/2016.?ON 1
     Route: 042
     Dates: start: 20160215
  4. LEVETIRACETAM. [Concomitant]
     Active Substance: LEVETIRACETAM
     Indication: LOSS OF CONSCIOUSNESS
     Route: 048
  5. PARACETAMOL [Concomitant]
     Active Substance: ACETAMINOPHEN
     Indication: PELVIC PAIN
     Route: 048
     Dates: start: 20160422
  6. ATEZOLIZUMAB [Suspect]
     Active Substance: ATEZOLIZUMAB
     Indication: RENAL CELL CARCINOMA
     Dosage: THE MOST RECENT DOSE OF ATEZOLIZUMAB PRIOR TO THE ONSET OF THE EVENT WAS 1200 MG ON 14/NOV/2016.?ON
     Route: 042
     Dates: start: 20160215
  7. THYROXIN [Concomitant]
     Active Substance: LEVOTHYROXINE
     Route: 048
     Dates: start: 20160422
  8. ASPIRIN. [Concomitant]
     Active Substance: ASPIRIN
     Indication: LOSS OF CONSCIOUSNESS
     Route: 048

REACTIONS (1)
  - Haematoma infection [Recovered/Resolved with Sequelae]

NARRATIVE: CASE EVENT DATE: 20161029
